FAERS Safety Report 7478175-X (Version None)
Quarter: 2011Q2

REPORT INFORMATION
  Report Type: 
  Country: None (occurrence: None)
  Receive Date: 20110513
  Receipt Date: 20110502
  Transmission Date: 20111010
  Serious: Yes (Hospitalization, Other)
  Sender: FDA-Public Use
  Company Number: DE-JNJFOC-20110305028

PATIENT
  Sex: Female
  Weight: 67 kg

DRUGS (1)
  1. RISPERDAL [Suspect]
     Indication: PRODUCT USED FOR UNKNOWN INDICATION
     Route: 048
     Dates: start: 20110312, end: 20110312

REACTIONS (3)
  - SUICIDE ATTEMPT [None]
  - PUPILLARY REFLEX IMPAIRED [None]
  - INTENTIONAL OVERDOSE [None]
